FAERS Safety Report 24606487 (Version 1)
Quarter: 2024Q4

REPORT INFORMATION
  Report Type: Spontaneous
  Country: ID (occurrence: ID)
  Receive Date: 20241112
  Receipt Date: 20241112
  Transmission Date: 20250115
  Serious: Yes (Life-Threatening, Hospitalization)
  Sender: ACCORD
  Company Number: ID-MLMSERVICE-20241024-PI238594-00043-1

PATIENT
  Age: 42 Year
  Sex: Male

DRUGS (3)
  1. ALLOPURINOL [Suspect]
     Active Substance: ALLOPURINOL
     Indication: Product used for unknown indication
     Dosage: ALLOPURINOL 300 MG TABLETS TWICE A DAY; HIGH DOSE OF ALLOPURINOL
  2. COLCHICINE [Concomitant]
     Active Substance: COLCHICINE
     Dosage: COLCHICINE 0.5 MG TABLETS TWICE A DAY
  3. METHYLPREDNISOLONE [Concomitant]
     Active Substance: METHYLPREDNISOLONE
     Dosage: 8 MG TABLETS THREE TIMES A DAY

REACTIONS (5)
  - Drug reaction with eosinophilia and systemic symptoms [Recovering/Resolving]
  - Blood urea increased [Recovered/Resolved]
  - Blood creatinine increased [Recovered/Resolved]
  - Hypoalbuminaemia [Recovered/Resolved]
  - Hepatic enzyme increased [Recovered/Resolved]
